FAERS Safety Report 5316566-3 (Version None)
Quarter: 2007Q2

REPORT INFORMATION
  Report Type: 
  Country: None (occurrence: None)
  Receive Date: 20070504
  Receipt Date: 20070425
  Transmission Date: 20071010
  Serious: Yes (Hospitalization)
  Sender: FDA-Public Use
  Company Number: 200416364US

PATIENT
  Sex: Male
  Weight: 70.76 kg

DRUGS (6)
  1. DOCETAXEL [Suspect]
     Indication: NON-SMALL CELL LUNG CANCER
     Route: 042
     Dates: start: 20040714, end: 20040714
  2. CARBOPLATIN [Suspect]
     Indication: NON-SMALL CELL LUNG CANCER
     Dosage: DOSE: AUC 2 (214 MG)
     Route: 042
     Dates: start: 20040714, end: 20040714
  3. RADIOTHERAPY NOS [Suspect]
     Indication: NON-SMALL CELL LUNG CANCER
     Dosage: DOSE: UNK
  4. GLIPIZIDE [Concomitant]
     Dosage: DOSE: UNK
  5. GLUCOPHAGE [Concomitant]
     Dosage: DOSE: UNK
  6. LOVENOX [Concomitant]
     Dosage: DOSE: UNK

REACTIONS (4)
  - DYSPNOEA [None]
  - HYPOGLYCAEMIA [None]
  - HYPOXIA [None]
  - PLEURAL EFFUSION [None]
